FAERS Safety Report 6408392-9 (Version None)
Quarter: 2009Q4

REPORT INFORMATION
  Report Type: 
  Country: None (occurrence: None)
  Receive Date: 20091021
  Receipt Date: 20091014
  Transmission Date: 20100525
  Serious: Yes (Hospitalization)
  Sender: FDA-Public Use
  Company Number: FR-AMGEN-QUU369083

PATIENT
  Sex: Female

DRUGS (4)
  1. NEULASTA [Suspect]
     Indication: CHEMOTHERAPY
     Route: 042
     Dates: start: 20090701, end: 20090701
  2. CAELYX [Concomitant]
     Route: 042
     Dates: start: 20090410, end: 20090430
  3. LEVOTHYROXINE SODIUM [Concomitant]
  4. CORTICOSTEROIDS [Concomitant]

REACTIONS (2)
  - ERYTHEMA MULTIFORME [None]
  - PALMAR-PLANTAR ERYTHRODYSAESTHESIA SYNDROME [None]
